FAERS Safety Report 10931093 (Version 1)
Quarter: 2015Q1

REPORT INFORMATION
  Report Type: Spontaneous
  Country: US (occurrence: None)
  Receive Date: 20150225
  Receipt Date: 20150225
  Transmission Date: 20150721
  Serious: Yes (Hospitalization)
  Sender: FDA-Public Use
  Company Number: 2014-US-011142

PATIENT
  Sex: Female

DRUGS (17)
  1. ARIMIDEX [Concomitant]
     Active Substance: ANASTROZOLE
  2. CLONAZEPAM. [Concomitant]
     Active Substance: CLONAZEPAM
  3. FLUOXETINE [Concomitant]
     Active Substance: FLUOXETINE\FLUOXETINE HYDROCHLORIDE
  4. PRIALT [Suspect]
     Active Substance: ZICONOTIDE ACETATE
     Indication: NEURALGIA
     Route: 037
  5. METHADONE HCL (METHADONE HYDROCHLORIDE) [Concomitant]
  6. SEROQUEL [Concomitant]
     Active Substance: QUETIAPINE FUMARATE
  7. BUPIVACAINE HYDROCHLORIDE. [Suspect]
     Active Substance: BUPIVACAINE HYDROCHLORIDE
     Indication: NEURALGIA
     Route: 037
  8. NEXIUM [Concomitant]
     Active Substance: ESOMEPRAZOLE MAGNESIUM
  9. DIALYVITE (ASCORBIC ACID, BIOTIN, FOLIC ACID, MECOBALAMIN, NICOTINIC ACID, PANTOTHENIC ACID, PYRIDOXINE HYDROCHLORIDE, RIBOFLAVIN, THIAMINE) [Concomitant]
  10. BUPIVACAINE HYDROCHLORIDE. [Suspect]
     Active Substance: BUPIVACAINE HYDROCHLORIDE
     Indication: CANCER PAIN
     Route: 037
  11. TIZANIDINE (TIZANIDINE HYDROCHLORIDE) [Concomitant]
     Active Substance: TIZANIDINE HYDROCHLORIDE
  12. MOBIC [Concomitant]
     Active Substance: MELOXICAM
  13. OXYCODONE HCL (OXYCODONE HYDROCHLORIDE) [Concomitant]
     Active Substance: OXYCODONE HYDROCHLORIDE
  14. VITAMIN D3 [Concomitant]
     Active Substance: CHOLECALCIFEROL
  15. ALBUTEROL HFA (SALBUTAMOL) [Concomitant]
  16. PRIALT [Suspect]
     Active Substance: ZICONOTIDE ACETATE
     Indication: CANCER PAIN
     Route: 037
  17. AMITIZA [Concomitant]
     Active Substance: LUBIPROSTONE

REACTIONS (3)
  - Confusional state [None]
  - Hallucination [None]
  - Paranoia [None]

NARRATIVE: CASE EVENT DATE: 201407
